FAERS Safety Report 14757393 (Version 1)
Quarter: 2018Q2

REPORT INFORMATION
  Report Type: Spontaneous
  Country: US (occurrence: US)
  Receive Date: 20180413
  Receipt Date: 20180413
  Transmission Date: 20180711
  Serious: No
  Sender: FDA-Public Use
  Company Number: US-BION-006659

PATIENT
  Age: 59 Year
  Sex: Male
  Weight: 160 kg

DRUGS (2)
  1. ALEVE [Suspect]
     Active Substance: NAPROXEN SODIUM
     Indication: PAIN
     Dosage: IN THE MORNING
     Route: 048
     Dates: start: 2007
  2. TYLENOL [Concomitant]
     Active Substance: ACETAMINOPHEN
     Dosage: AT NIGHT

REACTIONS (2)
  - Incorrect drug administration duration [Not Recovered/Not Resolved]
  - Expired product administered [Not Recovered/Not Resolved]

NARRATIVE: CASE EVENT DATE: 2007
